FAERS Safety Report 4546291-8 (Version None)
Quarter: 2005Q1

REPORT INFORMATION
  Report Type: 
  Country: None (occurrence: None)
  Receive Date: 20050106
  Receipt Date: 20050103
  Transmission Date: 20050727
  Serious: Yes (Hospitalization)
  Sender: FDA-Public Use
  Company Number: FR-MERCK-0501FRA00001

PATIENT
  Age: 43 Year
  Sex: Female

DRUGS (2)
  1. INDOCIN [Suspect]
     Indication: MIGRAINE WITHOUT AURA
     Route: 048
     Dates: start: 20040218, end: 20040321
  2. CARBAMAZEPINE [Suspect]
     Indication: MIGRAINE WITHOUT AURA
     Route: 048
     Dates: start: 20040216, end: 20040321

REACTIONS (8)
  - DRUG RASH WITH EOSINOPHILIA AND SYSTEMIC SYMPTOMS [None]
  - EOSINOPHILIA [None]
  - FACE OEDEMA [None]
  - HAEMOGLOBIN DECREASED [None]
  - HEPATITIS [None]
  - PRURITUS [None]
  - PYREXIA [None]
  - RASH MORBILLIFORM [None]
